FAERS Safety Report 9774760 (Version 1)
Quarter: 2013Q4

REPORT INFORMATION
  Report Type: Spontaneous
  Country: US (occurrence: US)
  Receive Date: 20131220
  Receipt Date: 20131220
  Transmission Date: 20140711
  Serious: No
  Sender: FDA-Public Use
  Company Number: US-PFIZER INC-2013364364

PATIENT
  Age: 45 Year
  Sex: Female
  Weight: 122 kg

DRUGS (8)
  1. NEURONTIN [Suspect]
     Indication: DIABETIC NEUROPATHY
     Dosage: UNK
  2. NEURONTIN [Suspect]
     Indication: INTERVERTEBRAL DISC DISORDER
  3. NEURONTIN [Suspect]
     Indication: BACK PAIN
  4. LYRICA [Suspect]
     Indication: DIABETIC NEUROPATHY
     Dosage: 75 MG, UNK
  5. LYRICA [Suspect]
     Indication: INTERVERTEBRAL DISC DISORDER
     Dosage: 50 MG, 2X/DAY
     Dates: start: 20131217
  6. LYRICA [Suspect]
     Indication: BACK PAIN
  7. LYRICA [Suspect]
     Indication: ARTHRITIS
  8. LYRICA [Suspect]
     Indication: SPONDYLITIS

REACTIONS (2)
  - Off label use [Unknown]
  - Drug ineffective [Unknown]
